FAERS Safety Report 6072050-3 (Version None)
Quarter: 2009Q1

REPORT INFORMATION
  Report Type: 
  Country: None (occurrence: None)
  Receive Date: 20090205
  Receipt Date: 20090205
  Transmission Date: 20090719
  Serious: Yes (Hospitalization)
  Sender: FDA-Public Use
  Company Number: None

PATIENT
  Age: 77 Year
  Sex: Female
  Weight: 67.2 kg

DRUGS (1)
  1. PHENYTOIN [Suspect]
     Indication: CONVULSION
     Dosage: 75MG BID PO
     Route: 048
     Dates: start: 20080901, end: 20090128

REACTIONS (3)
  - BRADYCARDIA [None]
  - HYPOTHERMIA [None]
  - THERAPEUTIC AGENT TOXICITY [None]
